FAERS Safety Report 8975750 (Version 2)
Quarter: 2013Q1

REPORT INFORMATION
  Report Type: Spontaneous
  Country: US (occurrence: US)
  Receive Date: 20121219
  Receipt Date: 20130117
  Transmission Date: 20140127
  Serious: No
  Sender: FDA-Public Use
  Company Number: US-PFIZER INC-2012315112

PATIENT
  Age: 52 Year
  Sex: Female

DRUGS (3)
  1. PROTONIX [Suspect]
     Dosage: 40 MG, 1 QHS
     Route: 048
  2. NAPROXEN SODIUM [Concomitant]
     Dosage: 500 MG, 1X/DAY (1 DAILY WITH FOOD)
  3. CYCLOBENZAPRINE [Concomitant]
     Dosage: 10 MG, 3X/DAY

REACTIONS (2)
  - Limb discomfort [Unknown]
  - Gastrooesophageal reflux disease [Unknown]
